FAERS Safety Report 7808593-9 (Version None)
Quarter: 2011Q4

REPORT INFORMATION
  Report Type: 
  Country: None (occurrence: None)
  Receive Date: 20111012
  Receipt Date: 20111010
  Transmission Date: 20120403
  Serious: Yes (Other)
  Sender: FDA-Public Use
  Company Number: US-PFIZER INC-2011241675

PATIENT
  Sex: Female
  Weight: 81.6 kg

DRUGS (1)
  1. PREMARIN [Suspect]
     Indication: HORMONE REPLACEMENT THERAPY
     Dosage: UNK
     Route: 067
     Dates: start: 20020101, end: 20020101

REACTIONS (1)
  - VAGINAL HAEMORRHAGE [None]
